FAERS Safety Report 7880679-2 (Version None)
Quarter: 2011Q4

REPORT INFORMATION
  Report Type: 
  Country: None (occurrence: None)
  Receive Date: 20111101
  Receipt Date: 20111020
  Transmission Date: 20120403
  Serious: No
  Sender: FDA-Public Use
  Company Number: US-B.I. PHARMACEUTICALS,INC./RIDGEFIELD-2011-BP-21034BP

PATIENT
  Sex: Male

DRUGS (21)
  1. HYDROCHLOROTHIAZIDE [Concomitant]
     Indication: HYPERTENSION
     Route: 048
  2. BETA PROSTATE [Concomitant]
  3. LISINOPRIL [Concomitant]
     Indication: HYPERTENSION
     Route: 048
  4. CMZ [Concomitant]
  5. UNKNOWN MEDICATION FOR BIPOLAR DISORDER [Concomitant]
  6. PRADAXA [Suspect]
     Indication: ATRIAL FIBRILLATION
     Dosage: 300 MG
     Route: 048
     Dates: start: 20101118, end: 20111024
  7. LIPITOR [Concomitant]
     Indication: BLOOD CHOLESTEROL INCREASED
     Route: 048
  8. TRAMADOL HCL [Concomitant]
     Indication: OSTEOARTHRITIS
     Route: 048
  9. HYDRALAZINE HCL [Concomitant]
     Indication: HYPERTENSION
     Route: 048
  10. MULTI V+M [Concomitant]
  11. GARLIC [Concomitant]
  12. PRADAXA [Suspect]
     Indication: CEREBROVASCULAR ACCIDENT
  13. RYTHMOL [Concomitant]
     Indication: CARDIAC DISORDER
     Route: 048
  14. OXCARBAZEPINE [Concomitant]
     Indication: BIPOLAR DISORDER
     Route: 048
  15. FISH OIL [Concomitant]
  16. PROPAFENONE HCL [Concomitant]
  17. METOPROLOL TARTRATE [Concomitant]
     Indication: HYPERTENSION
     Route: 048
  18. METOPROLOL TARTRATE [Concomitant]
     Indication: ATRIAL FIBRILLATION
  19. LECITHIN [Concomitant]
  20. OSTEO BI FLEX [Concomitant]
  21. POTASSIUM [Concomitant]

REACTIONS (3)
  - COAGULATION TIME SHORTENED [None]
  - LACERATION [None]
  - BLOOD VISCOSITY INCREASED [None]
